FAERS Safety Report 22613592 (Version 1)
Quarter: 2023Q2

REPORT INFORMATION
  Report Type: Spontaneous
  Country: JP (occurrence: JP)
  Receive Date: 20230619
  Receipt Date: 20230619
  Transmission Date: 20230722
  Serious: Yes (Other)
  Sender: FDA-Public Use
  Company Number: JP-002147023-NVSJ2023JP009791

PATIENT
  Age: 64 Year
  Sex: Female

DRUGS (4)
  1. ENTRESTO [Suspect]
     Active Substance: SACUBITRIL\VALSARTAN
     Indication: Hypertension
     Dosage: UNK
     Route: 048
  2. BENIDIPINE HYDROCHLORIDE [Suspect]
     Active Substance: BENIDIPINE HYDROCHLORIDE
     Indication: Hypertension
     Dosage: UNK
     Route: 065
  3. BENIDIPINE HYDROCHLORIDE [Suspect]
     Active Substance: BENIDIPINE HYDROCHLORIDE
     Dosage: UNK
     Route: 065
  4. ALLEGRA [Concomitant]
     Active Substance: FEXOFENADINE HYDROCHLORIDE
     Indication: Product used for unknown indication
     Dosage: UNK
     Route: 065

REACTIONS (4)
  - Arrhythmia [Unknown]
  - Cardiac failure [Unknown]
  - Pollakiuria [Recovering/Resolving]
  - Nasopharyngitis [Unknown]
